FAERS Safety Report 5638355-2 (Version None)
Quarter: 2008Q1

REPORT INFORMATION
  Report Type: 
  Country: None (occurrence: None)
  Receive Date: 20080222
  Receipt Date: 20080214
  Transmission Date: 20080703
  Serious: Yes (Hospitalization)
  Sender: FDA-Public Use
  Company Number: 2008-01386

PATIENT
  Age: 27 Year
  Sex: Male

DRUGS (3)
  1. ETOPOSIDE [Suspect]
     Indication: TESTIS CANCER
     Dosage: 100 MG/M2, FIRST 5 DAYS,
  2. CISPLATIN [Suspect]
     Indication: TESTIS CANCER
     Dosage: 100 MG/M2, FIRST 5 DAYS,
  3. BLEOMYCIN(BLEOMYCIN) [Suspect]
     Indication: TESTIS CANCER
     Dosage: 30 MG, DAYS 1, 8 + 15,

REACTIONS (1)
  - ACUTE MYOCARDIAL INFARCTION [None]
